FAERS Safety Report 4432610-X (Version None)
Quarter: 2004Q3

REPORT INFORMATION
  Report Type: 
  Country: None (occurrence: None)
  Receive Date: 20040820
  Receipt Date: 20040809
  Transmission Date: 20050211
  Serious: Yes (Hospitalization)
  Sender: FDA-Public Use
  Company Number: 2004UW16936

PATIENT
  Age: 35 Year
  Sex: Female
  Weight: 54.4316 kg

DRUGS (6)
  1. SEROQUEL [Suspect]
     Indication: BIPOLAR DISORDER
     Dosage: 600 MG DAILY PO
     Route: 048
     Dates: start: 20040501
  2. TOPAMAX [Concomitant]
  3. DEPAKOTE [Concomitant]
  4. CELEBREX [Concomitant]
  5. MULTIVITAMIN ^LAPPE^ [Concomitant]
  6. OYSTER SHELL CALCIUM [Concomitant]

REACTIONS (5)
  - BIPOLAR DISORDER [None]
  - DYSPHAGIA [None]
  - EYE IRRITATION [None]
  - EYE REDNESS [None]
  - KERATOCONJUNCTIVITIS SICCA [None]
